FAERS Safety Report 24954912 (Version 1)
Quarter: 2025Q1

REPORT INFORMATION
  Report Type: Spontaneous
  Country: CN (occurrence: CN)
  Receive Date: 20250211
  Receipt Date: 20250211
  Transmission Date: 20250409
  Serious: Yes (Hospitalization, Other)
  Sender: UNICHEM
  Company Number: CN-UNICHEM LABORATORIES LIMITED-UNI-2025-CN-000215

PATIENT

DRUGS (2)
  1. CARBAMAZEPINE [Suspect]
     Active Substance: CARBAMAZEPINE
     Indication: Epilepsy
     Route: 065
     Dates: start: 20240428
  2. BOTULINUM TOXIN NOS [Suspect]
     Active Substance: BOTULINUM TOXIN NOS
     Indication: Product used for unknown indication
     Route: 065
     Dates: start: 20240422

REACTIONS (1)
  - Stevens-Johnson syndrome [Recovering/Resolving]

NARRATIVE: CASE EVENT DATE: 20240430
